FAERS Safety Report 25556607 (Version 2)
Quarter: 2025Q3

REPORT INFORMATION
  Report Type: Spontaneous
  Country: US (occurrence: US)
  Receive Date: 20250715
  Receipt Date: 20250723
  Transmission Date: 20251021
  Serious: Yes (Other)
  Sender: PFIZER
  Company Number: US-PFIZER INC-PV202500083195

PATIENT
  Age: 75 Year
  Sex: Female

DRUGS (5)
  1. METHOTREXATE SODIUM [Suspect]
     Active Substance: METHOTREXATE SODIUM
     Indication: Pulmonary sarcoidosis
  2. ADALIMUMAB [Suspect]
     Active Substance: ADALIMUMAB
     Indication: Pulmonary sarcoidosis
  3. PREDNISONE [Suspect]
     Active Substance: PREDNISONE
     Indication: Pulmonary sarcoidosis
     Dosage: 60 MG, DAILY
  4. PREDNISONE [Suspect]
     Active Substance: PREDNISONE
     Indication: Haemoptysis
  5. PREDNISONE [Suspect]
     Active Substance: PREDNISONE

REACTIONS (3)
  - Pneumonia legionella [Unknown]
  - Renal disorder [Unknown]
  - Off label use [Unknown]
